FAERS Safety Report 11223647 (Version 2)
Quarter: 2015Q3

REPORT INFORMATION
  Report Type: Report from Study
  Country: US (occurrence: US)
  Receive Date: 20150629
  Receipt Date: 20150716
  Transmission Date: 20151125
  Serious: Yes (Other)
  Sender: FDA-Public Use
  Company Number: US-MERCK-1506USA013377

PATIENT

DRUGS (4)
  1. ZOLINZA [Suspect]
     Active Substance: VORINOSTAT
     Indication: NEUROBLASTOMA
     Dosage: 230 MG/M2 PER DAY, 2 CYCLES
     Route: 048
  2. DOXORUBICIN [Suspect]
     Active Substance: DOXORUBICIN
     Indication: NEUROBLASTOMA
     Dosage: 25 MG/M2 PER DOSE, 2 CYCLES
  3. SIMVASTIN [Suspect]
     Active Substance: SIMVASTATIN
     Indication: NEUROBLASTOMA
     Dosage: 20 MG/DAY, 2 CYCLES
  4. BORTEZOMIB [Suspect]
     Active Substance: BORTEZOMIB
     Indication: NEUROBLASTOMA
     Dosage: 1.3 MG/M2 PER DOSE, 2 CYCLES

REACTIONS (1)
  - Neutropenia [Unknown]
